FAERS Safety Report 12253924 (Version 1)
Quarter: 2016Q2

REPORT INFORMATION
  Report Type: Spontaneous
  Country: US (occurrence: US)
  Receive Date: 20160411
  Receipt Date: 20160411
  Transmission Date: 20160815
  Serious: Yes (Other)
  Sender: FDA-Public Use
  Company Number: US-PFIZER INC-2016195183

PATIENT
  Age: 36 Year
  Sex: Female

DRUGS (15)
  1. ZOLOFT [Suspect]
     Active Substance: SERTRALINE HYDROCHLORIDE
     Dosage: 200 MG, UNK
     Route: 048
     Dates: start: 20130131
  2. ALBUTEROL. [Concomitant]
     Active Substance: ALBUTEROL
     Dosage: 1 DF, AS NEEDED (0.083 % NEBS 1 EVERY 6 HOURS, PRN)
  3. FLONASE [Concomitant]
     Active Substance: FLUTICASONE PROPIONATE
     Dosage: UNK
  4. NASONEX [Concomitant]
     Active Substance: MOMETASONE FUROATE
     Dosage: UNK UNK, 1X/DAY (2 PUFF EACH NARES EVERY MORNING (1X/DAY)
  5. ALLEGRA [Concomitant]
     Active Substance: FEXOFENADINE HYDROCHLORIDE
     Dosage: 180 MG, 1X/DAY (1 AT HS)
  6. ZOLOFT [Suspect]
     Active Substance: SERTRALINE HYDROCHLORIDE
     Indication: ANXIETY
     Dosage: UNK
  7. LOVAZA [Concomitant]
     Active Substance: OMEGA-3-ACID ETHYL ESTERS
     Dosage: 1 AM 2 AT HS
  8. KLONOPIN [Concomitant]
     Active Substance: CLONAZEPAM
     Dosage: 0.5 MG, AS NEEDED (1 TID, PRN)
  9. LISINOPRIL. [Concomitant]
     Active Substance: LISINOPRIL
     Dosage: 15 MG, 1X/DAY (1 Q AM)
  10. PROVERA [Concomitant]
     Active Substance: MEDROXYPROGESTERONE ACETATE
     Dosage: 10 MG, UNK (1 1ST 10 DAYS OF EACH MONTH)
  11. TRAMADOL. [Concomitant]
     Active Substance: TRAMADOL
     Dosage: 50 MG, 2X/DAY
  12. ANORO ELLIPTA [Concomitant]
     Active Substance: UMECLIDINIUM BROMIDE\VILANTEROL TRIFENATATE
     Dosage: 1 PUFF  1X/DAY (QD)
  13. PROTONIX [Concomitant]
     Active Substance: PANTOPRAZOLE SODIUM
     Dosage: 40 MG, 1X/DAY
  14. ZETIA [Concomitant]
     Active Substance: EZETIMIBE
     Dosage: 10 MG, 1X/DAY (AT HS)
  15. ZYRTEC [Concomitant]
     Active Substance: CETIRIZINE HYDROCHLORIDE
     Dosage: 10 MG, 1X/DAY (1 HS)

REACTIONS (3)
  - Hyperhidrosis [Unknown]
  - Drug intolerance [Unknown]
  - Serotonin syndrome [Unknown]

NARRATIVE: CASE EVENT DATE: 20160308
